FAERS Safety Report 4586390-8 (Version None)
Quarter: 2005Q1

REPORT INFORMATION
  Report Type: 
  Country: None (occurrence: None)
  Receive Date: 20050125
  Receipt Date: 20040909
  Transmission Date: 20050727
  Serious: No
  Sender: FDA-Public Use
  Company Number: USA0409977821

PATIENT
  Age: 77 Year
  Sex: Female

DRUGS (1)
  1. FORTEO [Suspect]
     Dates: start: 20040803

REACTIONS (4)
  - MYALGIA [None]
  - NAUSEA [None]
  - PAIN IN JAW [None]
  - POLYMYALGIA RHEUMATICA [None]
